FAERS Safety Report 20453600 (Version 1)
Quarter: 2022Q1

REPORT INFORMATION
  Report Type: Report from Study
  Country: US (occurrence: None)
  Receive Date: 20220210
  Receipt Date: 20220210
  Transmission Date: 20220423
  Serious: Yes (Death, Hospitalization, Other)
  Sender: FDA-Public Use
  Company Number: US-ROCHE-2230757

PATIENT
  Age: 69 Year
  Sex: Female
  Weight: 56.2 kg

DRUGS (2)
  1. ATEZOLIZUMAB [Suspect]
     Active Substance: ATEZOLIZUMAB
     Indication: Biliary neoplasm
     Route: 041
     Dates: start: 20180510
  2. COBIMETINIB [Suspect]
     Active Substance: COBIMETINIB
     Indication: Biliary neoplasm
     Route: 048
     Dates: start: 20180510

REACTIONS (6)
  - Platelet count decreased [Unknown]
  - White blood cell count decreased [Recovered/Resolved]
  - Pyrexia [Recovered/Resolved]
  - Neutrophil count decreased [Unknown]
  - Anaemia [Unknown]
  - Sepsis [Fatal]

NARRATIVE: CASE EVENT DATE: 20180526
